FAERS Safety Report 24039719 (Version 1)
Quarter: 2024Q3

REPORT INFORMATION
  Report Type: Spontaneous
  Country: PT (occurrence: PT)
  Receive Date: 20240702
  Receipt Date: 20240702
  Transmission Date: 20241016
  Serious: Yes (Death, Life-Threatening, Hospitalization, Other)
  Sender: RANBAXY
  Company Number: PT-SUN PHARMACEUTICAL INDUSTRIES LTD-2024R1-453781

PATIENT
  Age: 23 Year
  Sex: Male
  Weight: 65 kg

DRUGS (10)
  1. TENOFOVIR [Suspect]
     Active Substance: TENOFOVIR
     Indication: Monkeypox
     Route: 065
  2. MORPHINE [Suspect]
     Active Substance: MORPHINE
     Indication: Pain management
     Route: 065
  3. EMTRICITABINE [Suspect]
     Active Substance: EMTRICITABINE
     Indication: Monkeypox
     Route: 065
  4. BICTEGRAVIR [Suspect]
     Active Substance: BICTEGRAVIR
     Indication: Monkeypox
     Route: 065
  5. GANCICLOVIR [Suspect]
     Active Substance: GANCICLOVIR
     Indication: Monkeypox
     Route: 065
  6. CIDOFOVIR [Suspect]
     Active Substance: CIDOFOVIR
     Indication: Monkeypox
     Dosage: 5 MILLIGRAM/KILOGRAM, WEEKLY FOR 2 WEEKS AND THEN ONCE EVERY OTHER WEEK
     Route: 042
  7. CABOTEGRAVIR [Suspect]
     Active Substance: CABOTEGRAVIR
     Indication: Monkeypox
     Dosage: 600 MILLIGRAM
     Route: 030
  8. RILPIVIRINE [Suspect]
     Active Substance: RILPIVIRINE
     Indication: Monkeypox
     Dosage: 900 MILLIGRAM
     Route: 030
  9. ZIDOVUDINE [Suspect]
     Active Substance: ZIDOVUDINE
     Indication: Monkeypox
     Dosage: 50 MILLIGRAM, EVERY FOUR HOURS
     Route: 042
  10. TECOVIRIMAT [Suspect]
     Active Substance: TECOVIRIMAT
     Indication: Monkeypox
     Route: 048

REACTIONS (3)
  - Drug ineffective [Unknown]
  - Condition aggravated [Unknown]
  - Septic shock [Fatal]
